FAERS Safety Report 4330726-X (Version None)
Quarter: 2004Q2

REPORT INFORMATION
  Report Type: 
  Country: None (occurrence: None)
  Receive Date: 20040402
  Receipt Date: 20010918
  Transmission Date: 20050107
  Serious: Yes (Hospitalization)
  Sender: FDA-Public Use
  Company Number: 2001SCR0062

PATIENT
  Age: 72 Year
  Sex: Male

DRUGS (5)
  1. LIPANTHYL [Concomitant]
     Dosage: 1 TAB AES#DOSE_FREQUENCY: DLY
     Route: 048
     Dates: end: 20010511
  2. SINEMET CR [Suspect]
     Indication: PARKINSON'S DISEASE
     Dosage: 50/200 MG, 3 TABLETS  DLY
     Route: 048
  3. PARLODEL [Concomitant]
     Dosage: 7.5 MG AES#DOSE_FREQUENCY: DLY
     Route: 048
     Dates: start: 19980506, end: 20010511
  4. MEDIATOR [Concomitant]
     Dosage: 300 MG AES#DOSE_FREQUENCY: DLY
     Route: 048
     Dates: end: 20010511
  5. LOPRIL [Concomitant]
     Dosage: 100 MG AES#DOSE_FREQUENCY: DLY
     Route: 048
     Dates: end: 20010511

REACTIONS (5)
  - PRURITUS [None]
  - PURPURA [None]
  - SKIN DESQUAMATION [None]
  - TOXIC SKIN ERUPTION [None]
  - URTICARIA [None]
